FAERS Safety Report 8878837 (Version 1)
Quarter: 2012Q4

REPORT INFORMATION
  Report Type: 
  Country: US (occurrence: US)
  Receive Date: 20121026
  Receipt Date: 20121026
  Transmission Date: 20130627
  Serious: Yes (Other)
  Sender: FDA-Public Use
  Company Number: US-BRISTOL-MYERS SQUIBB COMPANY-17048729

PATIENT
  Age: 84 Year
  Sex: Female
  Weight: 69 kg

DRUGS (1)
  1. YERVOY [Suspect]
     Indication: MALIGNANT MELANOMA
     Dosage: Second dose: 13Apr12
     Dates: start: 201204

REACTIONS (6)
  - Diarrhoea haemorrhagic [Recovered/Resolved]
  - Colitis [Recovered/Resolved]
  - Urticaria [Recovered/Resolved]
  - Lethargy [Recovered/Resolved]
  - Weight decreased [Recovered/Resolved]
  - Malnutrition [Recovered/Resolved]
